FAERS Safety Report 23986816 (Version 1)
Quarter: 2024Q2

REPORT INFORMATION
  Report Type: Spontaneous
  Country: US (occurrence: US)
  Receive Date: 20240618
  Receipt Date: 20240618
  Transmission Date: 20240716
  Serious: No
  Sender: FDA-Public Use
  Company Number: US-PFIZER INC-PV202400078984

PATIENT
  Age: 80 Year
  Sex: Female

DRUGS (1)
  1. INLYTA [Suspect]
     Active Substance: AXITINIB
     Dosage: UNK

REACTIONS (9)
  - Dizziness [Unknown]
  - Hypertension [Unknown]
  - Skin exfoliation [Unknown]
  - Pain [Unknown]
  - Blister [Unknown]
  - Protein urine [Unknown]
  - Peripheral swelling [Unknown]
  - Muscle spasms [Unknown]
  - Upper respiratory tract infection [Unknown]

NARRATIVE: CASE EVENT DATE: 20240501
